FAERS Safety Report 20042194 (Version 1)
Quarter: 2021Q4

REPORT INFORMATION
  Report Type: Spontaneous
  Country: None (occurrence: US)
  Receive Date: 20211108
  Receipt Date: 20211108
  Transmission Date: 20220303
  Serious: Yes (Hospitalization, Other)
  Sender: FDA-Public Use
  Company Number: US-MICRO LABS LIMITED-ML2021-02886

PATIENT
  Age: 21 Year
  Sex: Female

DRUGS (9)
  1. BUPROPION HYDROCHLORIDE [Suspect]
     Active Substance: BUPROPION HYDROCHLORIDE
  2. LEVETIRACETAM [Suspect]
     Active Substance: LEVETIRACETAM
  3. GABAPENTIN [Suspect]
     Active Substance: GABAPENTIN
  4. PROPRANOLOL [Suspect]
     Active Substance: PROPRANOLOL HYDROCHLORIDE
  5. PHENOBARBITAL [Suspect]
     Active Substance: PHENOBARBITAL
  6. VALPROATE SODIUM [Suspect]
     Active Substance: VALPROATE SODIUM
  7. FENTANYL [Suspect]
     Active Substance: FENTANYL
  8. PROPOFOL [Suspect]
     Active Substance: PROPOFOL
  9. LORAZEPAM [Suspect]
     Active Substance: LORAZEPAM

REACTIONS (12)
  - Status epilepticus [Unknown]
  - Overdose [Unknown]
  - Ventricular tachycardia [Unknown]
  - Drug ineffective [Unknown]
  - Generalised tonic-clonic seizure [Recovering/Resolving]
  - Abnormal behaviour [Unknown]
  - Tachycardia [Unknown]
  - Hyperhidrosis [Unknown]
  - Mucosal dryness [Unknown]
  - Mydriasis [Unknown]
  - Conjunctival hyperaemia [Unknown]
  - Metabolic acidosis [Unknown]
